FAERS Safety Report 10420222 (Version 1)
Quarter: 2014Q3

REPORT INFORMATION
  Report Type: Report from Study
  Country: US (occurrence: None)
  Receive Date: 20140804
  Receipt Date: 20140804
  Transmission Date: 20150326
  Serious: Yes (Other)
  Sender: FDA-Public Use
  Company Number: 2013US008749

PATIENT
  Age: 75 Year
  Sex: Female
  Weight: 44.7 kg

DRUGS (7)
  1. ANTIBIOTIC /00011701/ (CHLORAMPHENICOL) [Concomitant]
  2. ALBUTEROL /00139501/ (SALBUTAMOL) [Concomitant]
     Active Substance: ALBUTEROL
  3. PREDINISONE (PREDNISONE) [Concomitant]
  4. AZITHROMYCIN [Concomitant]
     Active Substance: AZITHROMYCIN ANHYDROUS
  5. GLASSIA [Suspect]
     Active Substance: .ALPHA.1-PROTEINASE INHIBITOR HUMAN
     Indication: ALPHA-1 ANTI-TRYPSIN DEFICIENCY
     Dosage: UNKNOWN BIWEEKLY?
     Dates: start: 201110
  6. MUCINEX (GUAIFENESIN) [Concomitant]
  7. MUCOMYST /00082801/ (ACETYLCYSTEINE) [Concomitant]

REACTIONS (12)
  - Lung infection [None]
  - Weight decreased [None]
  - Pyrexia [None]
  - Cataract [None]
  - Tremor [None]
  - Aphagia [None]
  - Bronchitis [None]
  - Cough [None]
  - Gait disturbance [None]
  - Bronchial secretion retention [None]
  - Paraesthesia oral [None]
  - Dyspnoea [None]

NARRATIVE: CASE EVENT DATE: 201305
